FAERS Safety Report 11851819 (Version 3)
Quarter: 2016Q1

REPORT INFORMATION
  Report Type: Report from Study
  Country: US (occurrence: US)
  Receive Date: 20151218
  Receipt Date: 20160122
  Transmission Date: 20160526
  Serious: Yes (Death, Other)
  Sender: FDA-Public Use
  Company Number: US-BAYER-2015-483267

PATIENT
  Age: 52 Year
  Sex: Male

DRUGS (13)
  1. STIVARGA [Suspect]
     Active Substance: REGORAFENIB
     Indication: COLORECTAL CANCER METASTATIC
     Dosage: 160 MG, QD (1 TO 21 DAY CYCLE OF 28 DAY CYCLE)
     Route: 048
  2. NEURONTIN [Concomitant]
     Active Substance: GABAPENTIN
  3. ZINC [Concomitant]
     Active Substance: ZINC\ZINC CHLORIDE
  4. STIVARGA [Suspect]
     Active Substance: REGORAFENIB
     Indication: COLORECTAL CANCER METASTATIC
     Dosage: 80 MG, QD
     Route: 048
  5. IRON COMPLEX [Concomitant]
  6. MORPHINE SULFATE. [Concomitant]
     Active Substance: MORPHINE SULFATE
  7. METHENAMINE [Concomitant]
     Active Substance: METHENAMINE
  8. STIVARGA [Suspect]
     Active Substance: REGORAFENIB
     Indication: COLORECTAL CANCER METASTATIC
     Dosage: 160 MG, QD FOR 21- DAYS OF 28 DAY CYCLE.
     Route: 048
     Dates: start: 201508
  9. OXYCODONE HYDROCHLORIDE. [Concomitant]
     Active Substance: OXYCODONE HYDROCHLORIDE
  10. AMOXICILLIN. [Concomitant]
     Active Substance: AMOXICILLIN
  11. FLUCONAZOLE. [Concomitant]
     Active Substance: FLUCONAZOLE
  12. XANAX [Concomitant]
     Active Substance: ALPRAZOLAM
  13. VESICARE [Concomitant]
     Active Substance: SOLIFENACIN SUCCINATE

REACTIONS (8)
  - Fatigue [None]
  - Blood urine present [Recovered/Resolved]
  - Pain [Recovered/Resolved]
  - Infection [Fatal]
  - Bladder catheter replacement [Recovered/Resolved]
  - Confusional state [None]
  - Decreased appetite [None]
  - Pain [Unknown]

NARRATIVE: CASE EVENT DATE: 20151202
